FAERS Safety Report 6330078-X (Version None)
Quarter: 2009Q3

REPORT INFORMATION
  Report Type: 
  Country: None (occurrence: None)
  Receive Date: 20090827
  Receipt Date: 20070525
  Transmission Date: 20100115
  Serious: Yes (Other)
  Sender: FDA-Public Use
  Company Number: US-ASTRAZENECA-2006UW24338

PATIENT
  Age: 15353 Day
  Sex: Male
  Weight: 110.2 kg

DRUGS (24)
  1. SEROQUEL [Suspect]
     Indication: INSOMNIA
     Dosage: 150 TO 600 MG
     Route: 048
     Dates: start: 20010101, end: 20050901
  2. SEROQUEL [Suspect]
     Indication: BIPOLAR DISORDER
     Dosage: 150 TO 600 MG
     Route: 048
     Dates: start: 20010101, end: 20050901
  3. SEROQUEL [Suspect]
     Indication: SLEEP DISORDER
     Dosage: 150 TO 600 MG
     Route: 048
     Dates: start: 20010101, end: 20050901
  4. SEROQUEL [Suspect]
     Indication: AFFECTIVE DISORDER
     Dosage: 150 TO 600 MG
     Route: 048
     Dates: start: 20010101, end: 20050901
  5. SEROQUEL [Suspect]
     Dosage: 100 MG - 800 MG
     Route: 048
     Dates: start: 20010614
  6. SEROQUEL [Suspect]
     Dosage: 100 MG - 800 MG
     Route: 048
     Dates: start: 20010614
  7. SEROQUEL [Suspect]
     Dosage: 100 MG - 800 MG
     Route: 048
     Dates: start: 20010614
  8. SEROQUEL [Suspect]
     Dosage: 100 MG - 800 MG
     Route: 048
     Dates: start: 20010614
  9. ZYPREXA [Suspect]
  10. CLOZARIL [Concomitant]
  11. RISPERDAL [Concomitant]
  12. TOPAMAX [Concomitant]
     Indication: CONVULSION
     Dosage: 100 MG - 400 MG
     Dates: start: 20010614
  13. TOPAMAX [Concomitant]
     Indication: AFFECTIVE DISORDER
     Dosage: 100 MG - 400 MG
     Dates: start: 20010614
  14. VALIUM [Concomitant]
     Dosage: 10 MG - 4 Q.D
     Dates: start: 20010614, end: 20030512
  15. DIGOXIN [Concomitant]
     Dosage: 4 MG
     Dates: start: 20010813
  16. ADDERALL 10 [Concomitant]
     Dosage: 70 MG
     Dates: start: 20010813
  17. OXYCODONE HCL [Concomitant]
     Dosage: 5 MG, 1-2 EVERY 6 HOURS
     Route: 048
     Dates: start: 20030405
  18. EFFEXOR XR [Concomitant]
     Dates: start: 20030512
  19. BUSPIRONE HCL [Concomitant]
     Route: 048
     Dates: start: 20061124
  20. INDAPAMIDE [Concomitant]
     Route: 048
     Dates: start: 20061124
  21. LEVOTHYROXINE SODIUM [Concomitant]
     Route: 048
     Dates: start: 20061124
  22. PRAZOSIN HCL [Concomitant]
     Dosage: 6 MG - 10 MG
     Route: 048
     Dates: start: 20061124
  23. GABAPENTIN [Concomitant]
     Dosage: 300 MG - 900 MG
     Route: 048
     Dates: start: 20061124
  24. INDOMETHACIN [Concomitant]
     Indication: GOUT
     Dosage: 50 MG, 2 - 3 TIMES DAILY
     Route: 048
     Dates: start: 20061124

REACTIONS (5)
  - DIABETES MELLITUS [None]
  - GLUCOSE TOLERANCE IMPAIRED [None]
  - NEUROPATHY PERIPHERAL [None]
  - PANCREATITIS [None]
  - TARDIVE DYSKINESIA [None]
